FAERS Safety Report 22302784 (Version 1)
Quarter: 2023Q2

REPORT INFORMATION
  Report Type: Spontaneous
  Country: CA (occurrence: None)
  Receive Date: 20230510
  Receipt Date: 20230510
  Transmission Date: 20230722
  Serious: Yes (Other)
  Sender: FDA-Public Use
  Company Number: CA-PFIZER INC-202200505832

PATIENT
  Age: 62 Year
  Sex: Female

DRUGS (8)
  1. METHOTREXATE [Suspect]
     Active Substance: METHOTREXATE
     Indication: Product used for unknown indication
     Route: 065
  2. ABRILADA [Concomitant]
     Active Substance: ADALIMUMAB-AFZB
     Indication: Ankylosing spondylitis
     Dosage: INJECTIONS ONCE A MONTH IN JAN-2023, EVERY 2 WEEKS IN FEB-2023
     Route: 058
  3. ABRILADA [Concomitant]
     Active Substance: ADALIMUMAB-AFZB
     Dosage: INJECTIONS ONCE A MONTH IN JAN-2023, EVERY 2 WEEKS IN FEB-2023
     Route: 058
     Dates: start: 2022
  4. DEXILANT [Concomitant]
     Active Substance: DEXLANSOPRAZOLE
     Route: 065
  5. VAGIFEM [Concomitant]
     Active Substance: ESTRADIOL
     Route: 065
  6. SYNTHROID [Concomitant]
     Active Substance: LEVOTHYROXINE SODIUM
     Route: 065
  7. HYDROXYCHLOROQUINE [Concomitant]
     Active Substance: HYDROXYCHLOROQUINE
     Route: 065
  8. LIPITOR [Concomitant]
     Active Substance: ATORVASTATIN CALCIUM
     Indication: Dyslipidaemia
     Route: 065
     Dates: start: 202211, end: 2023

REACTIONS (3)
  - Rectal haemorrhage [Unknown]
  - Hepatic enzyme increased [Not Recovered/Not Resolved]
  - Oedema peripheral [Not Recovered/Not Resolved]
